FAERS Safety Report 8921295 (Version 1)
Quarter: 2012Q4

REPORT INFORMATION
  Report Type: 
  Country: JP (occurrence: JP)
  Receive Date: 20121121
  Receipt Date: 20121121
  Transmission Date: 20130627
  Serious: Yes (Hospitalization)
  Sender: FDA-Public Use
  Company Number: JP-ROCHE-940900024001

PATIENT
  Age: 60 Year
  Sex: Female
  Weight: 45 kg

DRUGS (8)
  1. ROCEPHIN [Suspect]
     Indication: LYMPHADENITIS
     Route: 042
     Dates: start: 19931101, end: 19931108
  2. PENTCILLIN [Suspect]
     Indication: LYMPHADENITIS
     Route: 042
     Dates: start: 19931104, end: 19931108
  3. ALFAROL [Concomitant]
     Indication: OSTEOPOROSIS
     Route: 048
     Dates: start: 19931028, end: 19931109
  4. ASPARA-CA [Concomitant]
     Indication: OSTEOPOROSIS
     Route: 048
     Dates: start: 19931028, end: 19931109
  5. RULID [Concomitant]
     Indication: LYMPHADENITIS
     Route: 048
     Dates: start: 19931106, end: 19931109
  6. NAUZELIN [Concomitant]
     Indication: GASTRITIS
     Route: 048
     Dates: start: 19931106, end: 19931109
  7. MINOMYCIN [Concomitant]
     Indication: LYMPHADENITIS
     Route: 042
     Dates: start: 19931108, end: 19931109
  8. CEFAMEZIN [Concomitant]
     Indication: LYMPHADENITIS
     Route: 042
     Dates: start: 19931108, end: 19931109

REACTIONS (2)
  - Renal failure acute [Recovered/Resolved]
  - Rash [Recovered/Resolved]
